FAERS Safety Report 23591599 (Version 1)
Quarter: 2024Q1

REPORT INFORMATION
  Report Type: Spontaneous
  Country: US (occurrence: US)
  Receive Date: 20240304
  Receipt Date: 20240304
  Transmission Date: 20240410
  Serious: No
  Sender: FDA-Public Use
  Company Number: US-SA-SAC20240228000706

PATIENT
  Sex: Female

DRUGS (8)
  1. AUBAGIO [Suspect]
     Active Substance: TERIFLUNOMIDE
     Indication: Multiple sclerosis
     Dosage: 1 DF, QD
     Route: 048
  2. AMANTADINE [Concomitant]
     Active Substance: AMANTADINE
     Dosage: UNK
  3. DULOXETINE [Concomitant]
     Active Substance: DULOXETINE
     Dosage: UNK
  4. EZETIMIBE [Concomitant]
     Active Substance: EZETIMIBE
     Dosage: UNK
  5. LOSARTAN POTASSIUM [Concomitant]
     Active Substance: LOSARTAN POTASSIUM
     Dosage: UNK
  6. PROGESTERONE [Concomitant]
     Active Substance: PROGESTERONE
     Dosage: UNK
  7. ROSUVASTATIN [Concomitant]
     Active Substance: ROSUVASTATIN
     Dosage: UNK
  8. ZYRTEC [Concomitant]
     Active Substance: CETIRIZINE HYDROCHLORIDE
     Dosage: UNK

REACTIONS (4)
  - Visual impairment [Unknown]
  - Condition aggravated [Unknown]
  - Balance disorder [Unknown]
  - Hypoaesthesia [Unknown]
